FAERS Safety Report 25616751 (Version 1)
Quarter: 2025Q3

REPORT INFORMATION
  Report Type: Spontaneous
  Country: US (occurrence: US)
  Receive Date: 20250729
  Receipt Date: 20250729
  Transmission Date: 20251020
  Serious: Yes (Other)
  Sender: HIKMA
  Company Number: US-HIKMA PHARMACEUTICALS USA INC.-US-H14001-25-08795

PATIENT
  Sex: Male

DRUGS (11)
  1. ABIRATERONE [Suspect]
     Active Substance: ABIRATERONE
     Indication: Prostate cancer
     Dosage: 1000 MILLIGRAM, QD
     Route: 048
     Dates: start: 20240618
  2. ABIRATERONE [Suspect]
     Active Substance: ABIRATERONE
     Dosage: 500 MILLIGRAM, QD, REGIMEN 2
     Route: 048
  3. APALUTAMIDE [Suspect]
     Active Substance: APALUTAMIDE
     Indication: Prostate cancer
     Dosage: 240 MILLIGRAM, QD
     Route: 065
     Dates: end: 202406
  4. ORGOVYX [Suspect]
     Active Substance: RELUGOLIX
     Route: 048
  5. ORGOVYX [Suspect]
     Active Substance: RELUGOLIX
     Route: 048
  6. ORGOVYX [Suspect]
     Active Substance: RELUGOLIX
     Dosage: 120 MILLIGRAM, QD
     Route: 048
     Dates: start: 20240413
  7. ORGOVYX [Suspect]
     Active Substance: RELUGOLIX
     Indication: Prostate cancer
     Dosage: 240 MILLIGRAM, QD
     Route: 048
  8. ORGOVYX [Suspect]
     Active Substance: RELUGOLIX
     Route: 048
  9. ORGOVYX [Suspect]
     Active Substance: RELUGOLIX
     Dosage: 120 MILLIGRAM, QD, REGIMEN 2
     Route: 048
  10. ORGOVYX [Suspect]
     Active Substance: RELUGOLIX
     Route: 048
  11. PREDNISONE [Suspect]
     Active Substance: PREDNISONE
     Indication: Prostate cancer
     Dosage: 5 MILLIGRAM, QD
     Route: 048
     Dates: start: 20240618

REACTIONS (13)
  - Rash [Unknown]
  - Metastasis [Unknown]
  - Decreased interest [Unknown]
  - Chills [Unknown]
  - Hyperhidrosis [Unknown]
  - Rash pruritic [Not Recovered/Not Resolved]
  - Fatigue [Unknown]
  - Hypersensitivity [Unknown]
  - Headache [Unknown]
  - Feeling abnormal [Unknown]
  - Mental disorder [Unknown]
  - Prostatic specific antigen decreased [Unknown]
  - Drug hypersensitivity [Unknown]
